FAERS Safety Report 4618030-3 (Version None)
Quarter: 2005Q1

REPORT INFORMATION
  Report Type: 
  Country: None (occurrence: None)
  Receive Date: 20050324
  Receipt Date: 20050314
  Transmission Date: 20050727
  Serious: Yes (Hospitalization)
  Sender: FDA-Public Use
  Company Number: US-SANOFI-SYNTHELABO-F03200500038

PATIENT
  Sex: Male

DRUGS (6)
  1. UROXATRAL [Suspect]
     Indication: BENIGN PROSTATIC HYPERPLASIA
     Route: 048
     Dates: end: 20050305
  2. DITROPAN [Concomitant]
     Route: 065
  3. MULTI-VITAMINS [Concomitant]
     Route: 048
  4. TEMAZEPAM [Concomitant]
     Route: 065
  5. ZINC [Concomitant]
     Route: 065
  6. GLUCOSAMINE CHONDROITIN [Concomitant]
     Dosage: 400-500 MG QD
     Route: 065

REACTIONS (9)
  - ASTHENIA [None]
  - BENIGN PROSTATIC HYPERPLASIA [None]
  - DYSURIA [None]
  - HAEMATURIA [None]
  - MICTURITION URGENCY [None]
  - NOCTURIA [None]
  - POLLAKIURIA [None]
  - THROMBOSIS [None]
  - URINARY RETENTION [None]
